FAERS Safety Report 21458187 (Version 1)
Quarter: 2022Q4

REPORT INFORMATION
  Report Type: Spontaneous
  Country: US (occurrence: None)
  Receive Date: 20221013
  Receipt Date: 20221013
  Transmission Date: 20230113
  Serious: Yes (Death, Hospitalization)
  Sender: FDA-Public Use
  Company Number: None

PATIENT
  Age: 36 Year
  Sex: Female

DRUGS (2)
  1. MIFEPRISTONE [Suspect]
     Active Substance: MIFEPRISTONE
     Indication: Abortion induced
     Route: 048
     Dates: start: 20220811
  2. MISOPROSTOL [Suspect]
     Active Substance: MISOPROSTOL
     Route: 067
     Dates: start: 20220811

REACTIONS (6)
  - Exposure during pregnancy [None]
  - Maternal drugs affecting foetus [None]
  - Sepsis [None]
  - Gastric disorder [None]
  - Hypersomnia [None]
  - Hypophagia [None]

NARRATIVE: CASE EVENT DATE: 20220908
